FAERS Safety Report 20984891 (Version 2)
Quarter: 2022Q3

REPORT INFORMATION
  Report Type: Report from Study
  Country: GB (occurrence: GB)
  Receive Date: 20220621
  Receipt Date: 20220816
  Transmission Date: 20221027
  Serious: Yes (Life-Threatening, Hospitalization)
  Sender: FDA-Public Use
  Company Number: GB-BRISTOL-MYERS SQUIBB COMPANY-2022-054147

PATIENT
  Sex: Male
  Weight: 107.0 kg

DRUGS (6)
  1. AZACITIDINE [Suspect]
     Active Substance: AZACITIDINE
     Indication: Acute myeloid leukaemia
     Route: 048
     Dates: start: 20220404, end: 20220509
  2. ACYCLOVIR [Concomitant]
     Active Substance: ACYCLOVIR
     Indication: Product used for unknown indication
     Dosage: 200 UNIT: 1, FREQUENCY 2?INDICATION: ANTIVIRAL
     Route: 065
     Dates: start: 20220121
  3. LANSOPRAZOLE [Concomitant]
     Active Substance: LANSOPRAZOLE
     Indication: Product used for unknown indication
     Dosage: 30 UNIT: 1, FREQUENCY ONCE A DAY?INDICATION: GASTRORESISTANT
     Route: 065
     Dates: start: 20200806
  4. POSACONAZOLE [Concomitant]
     Active Substance: POSACONAZOLE
     Indication: Product used for unknown indication
     Dosage: 300 UNIT: 1, FREQUENCY TWICE A DAY?INDICATION: ANTIFUNGAL
     Route: 065
     Dates: start: 20220425
  5. LETERMOVIR [Concomitant]
     Active Substance: LETERMOVIR
     Indication: Antiviral prophylaxis
     Dosage: LAST DOSE ADMINISTERED ON 25-APR-2022
     Dates: start: 20220121
  6. CYCLOSPORINE [Concomitant]
     Active Substance: CYCLOSPORINE
     Indication: Immunosuppression
     Dosage: LAST DOSE ADMINISTERED ON 25-APR-2022
     Dates: start: 20220121

REACTIONS (1)
  - Pyrexia [Recovered/Resolved]

NARRATIVE: CASE EVENT DATE: 20220603
